FAERS Safety Report 10378565 (Version 2)
Quarter: 2014Q3

REPORT INFORMATION
  Report Type: Report from Study
  Country: FR (occurrence: FR)
  Receive Date: 20140812
  Receipt Date: 20140812
  Transmission Date: 20150326
  Serious: Yes (Other)
  Sender: FDA-Public Use
  Company Number: FR-BAYER-2013-025944

PATIENT
  Age: 68 Year
  Sex: Female

DRUGS (6)
  1. REGORAFENIB [Suspect]
     Active Substance: REGORAFENIB
     Dosage: 160 MG, QD
     Dates: start: 20130211
  2. ALDACTAZINE [Concomitant]
     Active Substance: ALTHIAZIDE\SPIRONOLACTONE
     Indication: HYPERTENSION
     Dosage: 1 DF, QD
     Dates: start: 201111
  3. INEXIUM [Concomitant]
     Active Substance: ESOMEPRAZOLE
     Indication: ABDOMINAL PAIN UPPER
     Dosage: 1 DF, QD
     Dates: start: 201111
  4. TOPALGIC [TRAMADOL HYDROCHLORIDE] [Concomitant]
     Indication: ABDOMINAL PAIN
     Dosage: 100 MG, QD
     Dates: start: 201111
  5. ZOLPIDEM [Concomitant]
     Active Substance: ZOLPIDEM\ZOLPIDEM TARTRATE
     Dosage: 1 DF, QD
     Dates: start: 201211
  6. CARDENSIEL [Concomitant]
     Active Substance: BISOPROLOL FUMARATE
     Indication: HYPERTENSION
     Dosage: 1 DF, QD
     Dates: start: 201111

REACTIONS (2)
  - Fatigue [Recovered/Resolved]
  - Cell death [None]

NARRATIVE: CASE EVENT DATE: 20130406
